FAERS Safety Report 7328265-7 (Version None)
Quarter: 2011Q1

REPORT INFORMATION
  Report Type: 
  Country: None (occurrence: None)
  Receive Date: 20110303
  Receipt Date: 20110228
  Transmission Date: 20110831
  Serious: Yes (Disabling, Other)
  Sender: FDA-Public Use
  Company Number: US-PFIZER INC-2010094499

PATIENT
  Sex: Female

DRUGS (4)
  1. CHANTIX [Suspect]
     Indication: SMOKING CESSATION THERAPY
     Dosage: SAMPLE STARTER PACK
     Dates: start: 20060101
  2. CYMBALTA [Concomitant]
     Indication: DEPRESSION
     Dosage: UNK
     Dates: start: 20070101, end: 20090101
  3. SEROQUEL [Concomitant]
     Indication: INSOMNIA
     Dosage: 50 MG, UNK
     Dates: start: 20030101
  4. CLONIDINE [Concomitant]
     Indication: INSOMNIA
     Dosage: 0.4 MG, UNK
     Dates: start: 20030101

REACTIONS (5)
  - SUICIDE ATTEMPT [None]
  - ROAD TRAFFIC ACCIDENT [None]
  - DEPRESSION [None]
  - ANXIETY [None]
  - AMNESIA [None]
